FAERS Safety Report 9408279 (Version 1)
Quarter: 2013Q3

REPORT INFORMATION
  Report Type: Report from Study
  Country: NL (occurrence: NL)
  Receive Date: 20130718
  Receipt Date: 20130718
  Transmission Date: 20140515
  Serious: Yes (Hospitalization)
  Sender: FDA-Public Use
  Company Number: PHHO2011NL17159

PATIENT
  Age: 41 Year
  Sex: Female
  Weight: 80.1 kg

DRUGS (8)
  1. CERTICAN [Suspect]
     Indication: RENAL TRANSPLANT
     Dosage: UNK
     Dates: start: 20110614, end: 20110804
  2. PREDNISOLONE SANDOZ [Suspect]
     Dosage: UNK
  3. PREDNISOLONE SANDOZ [Suspect]
     Dosage: 7.5 MG, QD
     Dates: start: 20111223
  4. TACROLIMUS [Concomitant]
     Indication: RENAL TRANSPLANT
     Dosage: 2 MG, BID
     Dates: start: 20111003
  5. TACROLIMUS [Concomitant]
     Dosage: UNK
     Dates: start: 20111011
  6. MYCOPHENOLATE MOFETIL [Concomitant]
     Dosage: UNK
  7. ANTICOAGULANTS [Concomitant]
     Dosage: UNK
  8. ASPIRIN [Concomitant]
     Dosage: UNK

REACTIONS (1)
  - Kidney transplant rejection [Recovered/Resolved]
